FAERS Safety Report 14844570 (Version 1)
Quarter: 2018Q2

REPORT INFORMATION
  Report Type: Report from Study
  Country: None (occurrence: LB)
  Receive Date: 20180503
  Receipt Date: 20180503
  Transmission Date: 20180711
  Serious: Yes (Hospitalization)
  Sender: FDA-Public Use
  Company Number: LB-ABBVIE-18S-093-2338418-00

PATIENT
  Age: 48 Year
  Sex: Male
  Weight: 85 kg

DRUGS (3)
  1. VIEKIRAX [Suspect]
     Active Substance: OMBITASVIR\PARITAPREVIR\RITONAVIR
     Indication: HEPATITIS C
     Dosage: 1 TAB MORNING+ 1 TAB EVENING
     Route: 048
     Dates: start: 20180413
  2. PANADOL [Concomitant]
     Active Substance: ACETAMINOPHEN
     Indication: PRODUCT USED FOR UNKNOWN INDICATION
     Dosage: WHEN NECESSARY
  3. RIBAVIRIN. [Concomitant]
     Active Substance: RIBAVIRIN
     Indication: HEPATITIS C
     Dosage: 2 TAB MORNING, 3 TAB EVENING
     Route: 048
     Dates: start: 20180413

REACTIONS (3)
  - Wrong technique in product usage process [Recovered/Resolved]
  - Abdominal discomfort [Recovered/Resolved]
  - Abdominal pain [Recovered/Resolved]

NARRATIVE: CASE EVENT DATE: 20180425
